FAERS Safety Report 8025746-8 (Version None)
Quarter: 2012Q1

REPORT INFORMATION
  Report Type: 
  Country: None (occurrence: None)
  Receive Date: 20120105
  Receipt Date: 20110812
  Transmission Date: 20120608
  Serious: No
  Sender: FDA-Public Use
  Company Number: US-ABBOTT-11P-163-0846021-00

PATIENT
  Age: 71 Year
  Sex: Female
  Weight: 57.658 kg

DRUGS (2)
  1. SYNTHROID [Suspect]
     Indication: HYPOTHYROIDISM
  2. CYTOMEL [Suspect]
     Indication: HYPOTHYROIDISM

REACTIONS (6)
  - ASTHENIA [None]
  - LETHARGY [None]
  - ALOPECIA [None]
  - DRUG INEFFECTIVE [None]
  - DEPRESSION [None]
  - ONYCHOMADESIS [None]
